FAERS Safety Report 25358868 (Version 1)
Quarter: 2025Q2

REPORT INFORMATION
  Report Type: Spontaneous
  Country: TR (occurrence: TR)
  Receive Date: 20250526
  Receipt Date: 20250526
  Transmission Date: 20250716
  Serious: Yes (Congenital Anomaly)
  Sender: EPIC PHARM
  Company Number: TR-EPICPHARMA-TR-2025EPCLIT00607

PATIENT
  Weight: 3.85 kg

DRUGS (1)
  1. LEVETIRACETAM [Suspect]
     Active Substance: LEVETIRACETAM
     Indication: Foetal exposure during pregnancy
     Route: 065

REACTIONS (2)
  - Atrial septal defect [Unknown]
  - Foetal exposure during pregnancy [Unknown]
